FAERS Safety Report 11165239 (Version 1)
Quarter: 2015Q2

REPORT INFORMATION
  Report Type: Report from Study
  Country: CN (occurrence: CN)
  Receive Date: 20150604
  Receipt Date: 20150604
  Transmission Date: 20150821
  Serious: No
  Sender: FDA-Public Use
  Company Number: CN-UCBSA-2015006033

PATIENT
  Age: 40 Year
  Sex: Female
  Weight: 68 kg

DRUGS (8)
  1. BLINDED CERTOLIZUMAB PEGOL RA [Suspect]
     Active Substance: CERTOLIZUMAB PEGOL
     Dosage: (NO OF DOSES RECEIVED 5) 200 MG, EV 2 WEEKS(QOW)
     Route: 058
     Dates: start: 20141223, end: 20150215
  2. PLACEBO [Suspect]
     Active Substance: UNSPECIFIED INGREDIENT
     Dosage: (NO OF DOSES RECEIVED 5) 200 MG, EV 2 WEEKS(QOW)
     Route: 058
     Dates: start: 20141223, end: 20150215
  3. DICLOFENAC SODIUM. [Concomitant]
     Active Substance: DICLOFENAC SODIUM
     Indication: RHEUMATOID ARTHRITIS
     Dosage: 50 MG, 2X/DAY (BID)
     Route: 048
     Dates: start: 201405
  4. PLACEBO [Suspect]
     Active Substance: UNSPECIFIED INGREDIENT
     Indication: RHEUMATOID ARTHRITIS
     Dosage: 400 MG, EV 2 WEEKS(QOW) (NO OF DOSES RECEIVED 3)
     Route: 058
     Dates: start: 20141111, end: 20141211
  5. SILIBININ [Suspect]
     Active Substance: SILIBININ
     Indication: UNEVALUABLE EVENT
     Dosage: 3 PILLS, 3X/DAY (TID)
     Route: 048
     Dates: start: 20150313, end: 20150320
  6. BLINDED CERTOLIZUMAB PEGOL RA [Suspect]
     Active Substance: CERTOLIZUMAB PEGOL
     Indication: RHEUMATOID ARTHRITIS
     Dosage: 400 MG, EV 2 WEEKS(QOW) (NO OF DOSES RECEIVED 3)
     Route: 058
     Dates: start: 20141111, end: 20141211
  7. METHOTREXATE [Concomitant]
     Active Substance: METHOTREXATE
     Indication: RHEUMATOID ARTHRITIS
     Dosage: 15 MG, WEEKLY (QW)
     Route: 048
     Dates: start: 201405
  8. FOLIC ACID. [Concomitant]
     Active Substance: FOLIC ACID
     Indication: RHEUMATOID ARTHRITIS
     Dosage: 10 MG, WEEKLY (QW)
     Route: 048
     Dates: start: 201403

REACTIONS (1)
  - Latent tuberculosis [Recovered/Resolved]

NARRATIVE: CASE EVENT DATE: 20150215
